FAERS Safety Report 6563985-3 (Version None)
Quarter: 2010Q1

REPORT INFORMATION
  Report Type: 
  Country: None (occurrence: None)
  Receive Date: 20100131
  Receipt Date: 20100120
  Transmission Date: 20100710
  Serious: Yes (Other)
  Sender: FDA-Public Use
  Company Number: DK-JNJFOC-20091104833

PATIENT
  Sex: Female
  Weight: 58 kg

DRUGS (5)
  1. REMICADE [Suspect]
     Indication: ANKYLOSING SPONDYLITIS
     Route: 042
  2. REMICADE [Suspect]
     Dosage: GIVEN AT WEEK 0, 2, 6,  8 (ALSO REPORTED AS LAST DOSE ON 13-AUG-2009)
     Route: 042
  3. REMICADE [Suspect]
     Route: 042
  4. REMICADE [Suspect]
     Route: 042
  5. ENBREL [Concomitant]
     Indication: ANKYLOSING SPONDYLITIS

REACTIONS (11)
  - CHILLS [None]
  - DIARRHOEA [None]
  - DIZZINESS [None]
  - HEADACHE [None]
  - HOT FLUSH [None]
  - HYPERHIDROSIS [None]
  - INFUSION RELATED REACTION [None]
  - NASOPHARYNGITIS [None]
  - NAUSEA [None]
  - OROPHARYNGEAL PAIN [None]
  - VOMITING [None]
